FAERS Safety Report 8649833 (Version 3)
Quarter: 2013Q4

REPORT INFORMATION
  Report Type: Spontaneous
  Country: US (occurrence: US)
  Receive Date: 20120705
  Receipt Date: 20131231
  Transmission Date: 20140711
  Serious: Yes (Other)
  Sender: FDA-Public Use
  Company Number: US-BAYER-2012-065119

PATIENT
  Age: 24 Year
  Sex: Female
  Weight: 77.1 kg

DRUGS (6)
  1. YAZ [Suspect]
     Dosage: UNK
     Dates: start: 200906
  2. IBUPROFEN [Concomitant]
     Dosage: UNK
     Route: 048
     Dates: start: 2002
  3. FEXOFENADINE [Concomitant]
     Dosage: 180 MG, UNK
     Route: 048
  4. CITALOPRAM [Concomitant]
     Dosage: 40 MG, UNK
     Route: 048
  5. PREVACID [Concomitant]
  6. SEASONIQUE [Concomitant]

REACTIONS (9)
  - Cholelithiasis [None]
  - Cholecystitis chronic [None]
  - Oesophageal ulcer [None]
  - Pain [None]
  - Pain [None]
  - Fear [None]
  - Scar [None]
  - Malaise [None]
  - Vomiting [None]
